FAERS Safety Report 11623897 (Version 1)
Quarter: 2015Q4

REPORT INFORMATION
  Report Type: Spontaneous
  Country: US (occurrence: US)
  Receive Date: 20151013
  Receipt Date: 20151013
  Transmission Date: 20160304
  Serious: No
  Sender: FDA-Public Use
  Company Number: US-JNJFOC-20150815263

PATIENT
  Age: 83 Year
  Sex: Female
  Weight: 61.24 kg

DRUGS (4)
  1. THYROID THERAPY [Concomitant]
     Active Substance: UNSPECIFIED INGREDIENT
     Indication: THYROID DISORDER
     Route: 065
  2. MENS ROGAINE EXTRA STRENGTH [Suspect]
     Active Substance: MINOXIDIL
     Route: 061
  3. MENS ROGAINE EXTRA STRENGTH [Suspect]
     Active Substance: MINOXIDIL
     Indication: ALOPECIA
     Dosage: FULL CAPFUL, 1 TIME DAILY OR EVERY OTHER DAY
     Route: 061
  4. UNSPECIFIED CHOLESTEROL MEDICATION [Concomitant]
     Indication: BLOOD CHOLESTEROL
     Route: 065

REACTIONS (3)
  - Product formulation issue [Unknown]
  - Wrong patient received medication [Recovered/Resolved]
  - Paraesthesia [Recovered/Resolved]
